FAERS Safety Report 8380052-7 (Version None)
Quarter: 2012Q2

REPORT INFORMATION
  Report Type: 
  Country: None (occurrence: None)
  Receive Date: 20120523
  Receipt Date: 20120510
  Transmission Date: 20120825
  Serious: Yes (Death)
  Sender: FDA-Public Use
  Company Number: US-GLAXOSMITHKLINE-A0938250A

PATIENT
  Age: 60 Year
  Sex: Male
  Weight: 99.5 kg

DRUGS (5)
  1. LIPITOR [Concomitant]
  2. CARTIA XT [Concomitant]
  3. LISINOPRIL [Concomitant]
  4. METFORMIN HCL [Concomitant]
  5. AVANDIA [Suspect]
     Indication: DIABETES MELLITUS
     Dosage: 8MG PER DAY
     Route: 048
     Dates: start: 20080101, end: 20091201

REACTIONS (1)
  - MYOCARDIAL INFARCTION [None]
